FAERS Safety Report 24443688 (Version 2)
Quarter: 2024Q4

REPORT INFORMATION
  Report Type: Report from Study
  Country: US (occurrence: US)
  Receive Date: 20241016
  Receipt Date: 20241017
  Transmission Date: 20250115
  Serious: No
  Sender: ROCHE
  Company Number: US-ROCHE-1991347

PATIENT
  Age: 63 Year
  Sex: Female

DRUGS (4)
  1. RITUXAN [Suspect]
     Active Substance: RITUXIMAB
     Indication: Neuromyelitis optica spectrum disorder
     Dosage: ANTICIPATED DATE OF TREATEMENT:01/SEP/2022
     Route: 041
     Dates: start: 20170815
  2. RITUXAN [Suspect]
     Active Substance: RITUXIMAB
     Indication: Multiple sclerosis
     Route: 041
  3. RITUXAN [Suspect]
     Active Substance: RITUXIMAB
     Indication: Demyelination
  4. RITUXAN [Suspect]
     Active Substance: RITUXIMAB
     Indication: Arteritis

REACTIONS (2)
  - Off label use [Unknown]
  - No adverse event [Unknown]
